FAERS Safety Report 5778754-1 (Version None)
Quarter: 2008Q2

REPORT INFORMATION
  Report Type: 
  Country: None (occurrence: None)
  Receive Date: 20080618
  Receipt Date: 20080618
  Transmission Date: 20081010
  Serious: Yes (Hospitalization)
  Sender: FDA-Public Use
  Company Number: None

PATIENT
  Sex: Male
  Weight: 124 kg

DRUGS (2)
  1. NEXIUM [Suspect]
     Indication: GASTROINTESTINAL DISORDER
     Dosage: 40 MG DAILY PO
     Route: 048
     Dates: start: 20080606, end: 20080608
  2. NEXIUM [Suspect]
     Indication: PROPHYLAXIS
     Dosage: 40 MG DAILY PO
     Route: 048
     Dates: start: 20080606, end: 20080608

REACTIONS (3)
  - CONVULSION [None]
  - EXCESSIVE EXERCISE [None]
  - RHABDOMYOLYSIS [None]
